FAERS Safety Report 14712610 (Version 1)
Quarter: 2018Q2

REPORT INFORMATION
  Report Type: Spontaneous
  Country: FR (occurrence: FR)
  Receive Date: 20180404
  Receipt Date: 20180404
  Transmission Date: 20180711
  Serious: Yes (Hospitalization)
  Sender: FDA-Public Use
  Company Number: FR-ABBVIE-18S-056-2308225-00

PATIENT
  Age: 56 Year
  Sex: Male

DRUGS (2)
  1. DEPAKINE [Suspect]
     Active Substance: VALPROATE SODIUM
     Indication: TREMOR
     Route: 048
     Dates: start: 201705, end: 20180226
  2. CLONAZEPAM. [Suspect]
     Active Substance: CLONAZEPAM
     Indication: TREMOR
     Route: 048
     Dates: start: 201705, end: 201802

REACTIONS (9)
  - Cerebellar syndrome [Recovering/Resolving]
  - Myoclonus [Recovering/Resolving]
  - Pyramidal tract syndrome [Recovering/Resolving]
  - Ataxia [Not Recovered/Not Resolved]
  - Dysmetria [Recovered/Resolved]
  - Intention tremor [Recovered/Resolved]
  - Opisthotonus [Not Recovered/Not Resolved]
  - Hypotonia [Recovered/Resolved]
  - Cerebellar syndrome [Recovered/Resolved]

NARRATIVE: CASE EVENT DATE: 201705
